FAERS Safety Report 6252023-8 (Version None)
Quarter: 2009Q2

REPORT INFORMATION
  Report Type: 
  Country: None (occurrence: None)
  Receive Date: 20090630
  Receipt Date: 20040127
  Transmission Date: 20091009
  Serious: Yes (Hospitalization)
  Sender: FDA-Public Use
  Company Number: US-ROCHE-638547

PATIENT
  Sex: Male

DRUGS (6)
  1. ENFUVIRTIDE [Suspect]
     Route: 065
     Dates: start: 20030628, end: 20080814
  2. EPIVIR [Concomitant]
     Dates: start: 20030228, end: 20040101
  3. VIREAD [Concomitant]
     Dosage: FREQUENCY REPORTED AS QD
     Dates: start: 20030228, end: 20030730
  4. INVIRASE [Concomitant]
     Dosage: FREQUENCY REPORTED AS QD
     Dates: start: 20030516, end: 20040916
  5. REYATAZ [Concomitant]
     Dosage: FREQUENCY REPORTED AS QD
     Dates: start: 20030516, end: 20040916
  6. NORVIR [Concomitant]
     Dosage: FREQUENCY REPORTED AS QD
     Dates: start: 20030730, end: 20040916

REACTIONS (1)
  - ASTHMA [None]
